FAERS Safety Report 12641675 (Version 2)
Quarter: 2016Q3

REPORT INFORMATION
  Report Type: Spontaneous
  Country: JP (occurrence: JP)
  Receive Date: 20160810
  Receipt Date: 20160926
  Transmission Date: 20161109
  Serious: Yes (Hospitalization, Other)
  Sender: FDA-Public Use
  Company Number: JP-PFIZER INC-2016379346

PATIENT
  Age: 82 Year
  Sex: Male

DRUGS (8)
  1. CAMPTO [Suspect]
     Active Substance: IRINOTECAN
     Indication: OESOPHAGEAL CARCINOMA
     Dosage: 48 MG/M2, 1X/DAY
     Route: 041
  2. CAMPTO [Suspect]
     Active Substance: IRINOTECAN
     Dosage: UNK (REDUCED TO 80% THAN UPTO 70%)
  3. CISPLATIN. [Concomitant]
     Active Substance: CISPLATIN
     Dosage: 60 MG/M2, UNK (ON DAY 1, 8, 15)
  4. CISPLATIN. [Concomitant]
     Active Substance: CISPLATIN
     Indication: METASTASES TO LYMPH NODES
     Dosage: 42 MG/M2, UNK
     Route: 041
  5. CAMPTO [Suspect]
     Active Substance: IRINOTECAN
     Dosage: 42 MG/M2, 1X/DAY
     Route: 041
  6. CAMPTO [Suspect]
     Active Substance: IRINOTECAN
     Dosage: 60 MG/M2, UNK (ON DAY 1, 8, 15)
  7. CISPLATIN. [Concomitant]
     Active Substance: CISPLATIN
     Indication: OESOPHAGEAL CARCINOMA
     Dosage: 48 MG/M2, 1X/DAY
     Route: 041
  8. CISPLATIN. [Concomitant]
     Active Substance: CISPLATIN
     Dosage: UNK (REDUCED TO 80% THAN UPTO 70%)

REACTIONS (4)
  - Neutropenia [Unknown]
  - Radiation pneumonitis [Recovering/Resolving]
  - Leukopenia [Unknown]
  - Febrile neutropenia [Unknown]
